FAERS Safety Report 7931565-0 (Version None)
Quarter: 2011Q4

REPORT INFORMATION
  Report Type: 
  Country: None (occurrence: None)
  Receive Date: 20111121
  Receipt Date: 20111121
  Transmission Date: 20120403
  Serious: No
  Sender: FDA-Public Use
  Company Number: None

PATIENT
  Age: 66 Year
  Sex: Female
  Weight: 68.038 kg

DRUGS (2)
  1. AGGRENOX [Suspect]
     Indication: PROPHYLAXIS
     Dosage: 200 MG
     Route: 048
     Dates: start: 20111017, end: 20111018
  2. AGGRENOX [Suspect]
     Indication: TRANSIENT ISCHAEMIC ATTACK
     Dosage: 200 MG
     Route: 048
     Dates: start: 20111017, end: 20111018

REACTIONS (2)
  - SPEECH DISORDER [None]
  - NERVOUS SYSTEM DISORDER [None]
